FAERS Safety Report 16726500 (Version 1)
Quarter: 2019Q3

REPORT INFORMATION
  Report Type: Report from Study
  Country: US (occurrence: US)
  Receive Date: 20190821
  Receipt Date: 20190821
  Transmission Date: 20191005
  Serious: Yes (Hospitalization, Other)
  Sender: FDA-Public Use
  Company Number: US-BRISTOL-MYERS SQUIBB COMPANY-BMS-2019-040807

PATIENT
  Age: 46 Year
  Sex: Female
  Weight: 60.6 kg

DRUGS (6)
  1. APX005M [Suspect]
     Active Substance: INVESTIGATIONAL PRODUCT
     Indication: PANCREATIC CARCINOMA METASTATIC
     Dosage: 0.3 MILLIGRAM/KILOGRAM
     Route: 065
     Dates: start: 20180927, end: 20190322
  2. ONDANSETRON [Concomitant]
     Active Substance: ONDANSETRON
     Indication: PRODUCT USED FOR UNKNOWN INDICATION
     Dosage: 4 MILLIGRAM, EVERY 8 HOURS AS NEEDED
     Route: 065
     Dates: start: 20190420, end: 20190520
  3. GEMCITABINE HYDROCHLORIDE. [Suspect]
     Active Substance: GEMCITABINE HYDROCHLORIDE
     Indication: PANCREATIC CARCINOMA METASTATIC
     Dosage: 1000 MILLIGRAM/SQ. METER
     Route: 065
     Dates: start: 20180925, end: 20190418
  4. LEVOTHYROXINE. [Concomitant]
     Active Substance: LEVOTHYROXINE
     Indication: PRODUCT USED FOR UNKNOWN INDICATION
     Dosage: 75 MICROGRAM
     Route: 065
     Dates: start: 20190422, end: 20190522
  5. NIVOLUMAB [Suspect]
     Active Substance: NIVOLUMAB
     Indication: PANCREATIC CARCINOMA METASTATIC
     Dosage: 240 MILLIGRAM
     Route: 065
     Dates: start: 20180925, end: 20190418
  6. PACLITAXEL ALBUMIN [Suspect]
     Active Substance: PACLITAXEL
     Indication: PANCREATIC CARCINOMA METASTATIC
     Dosage: 125 MILLIGRAM/SQ. METER
     Route: 065
     Dates: start: 20180925, end: 20190418

REACTIONS (8)
  - Mesenteric venous occlusion [Not Recovered/Not Resolved]
  - Nausea [Unknown]
  - Vitamin B12 deficiency [Unknown]
  - Small intestinal obstruction [Unknown]
  - Neutropenia [Unknown]
  - Diverticulum intestinal haemorrhagic [Unknown]
  - Sepsis [Unknown]
  - Anaemia [Unknown]

NARRATIVE: CASE EVENT DATE: 20190420
